FAERS Safety Report 9416938 (Version 1)
Quarter: 2013Q3

REPORT INFORMATION
  Report Type: Spontaneous
  Country: US (occurrence: None)
  Receive Date: 20130722
  Receipt Date: 20130722
  Transmission Date: 20140515
  Serious: Yes (Hospitalization)
  Sender: FDA-Public Use
  Company Number: SYM-2013-06816

PATIENT
  Age: 68 Year
  Sex: Female

DRUGS (1)
  1. XENAZINE [Suspect]
     Indication: HUNTINGTON^S DISEASE
     Dosage: 25MG ONCE IN THE MORNING, 12.5 MG ONCE IN THE AFTERNOON AND EVENING, ORAL
     Route: 048
     Dates: start: 20130315

REACTIONS (5)
  - Heart rate increased [None]
  - Blood pressure increased [None]
  - Fatigue [None]
  - Agitation [None]
  - Irritability [None]
